FAERS Safety Report 12654391 (Version 1)
Quarter: 2016Q3

REPORT INFORMATION
  Report Type: Report from Study
  Country: US (occurrence: US)
  Receive Date: 20160816
  Receipt Date: 20160816
  Transmission Date: 20161109
  Serious: Yes (Other)
  Sender: FDA-Public Use
  Company Number: US-ACCORD-043212

PATIENT
  Age: 78 Year
  Sex: Female

DRUGS (5)
  1. NITROGEN/LIQUID [Concomitant]
     Indication: ECZEMA
  2. TACROLIMUS. [Suspect]
     Active Substance: TACROLIMUS
     Indication: ECZEMA
     Route: 048
  3. ACITRETIN. [Concomitant]
     Active Substance: ACITRETIN
     Indication: ECZEMA
  4. LEVOCETIRIZINE/LEVOCETIRIZINE DIHYDROCHLORIDE [Concomitant]
     Indication: ECZEMA
  5. MYCOPHENOLIC ACID. [Concomitant]
     Active Substance: MYCOPHENOLIC ACID
     Indication: ECZEMA

REACTIONS (2)
  - Squamous cell carcinoma [Not Recovered/Not Resolved]
  - Off label use [Unknown]
